FAERS Safety Report 17711047 (Version 1)
Quarter: 2020Q2

REPORT INFORMATION
  Report Type: Spontaneous
  Country: US (occurrence: US)
  Receive Date: 20200427
  Receipt Date: 20200427
  Transmission Date: 20200714
  Serious: Yes (Other)
  Sender: FDA-Public Use
  Company Number: US-PFIZER INC-2020160457

PATIENT
  Age: 88 Year
  Sex: Female

DRUGS (2)
  1. XELJANZ XR [Suspect]
     Active Substance: TOFACITINIB CITRATE
     Dosage: 11 MG
  2. XELJANZ XR [Suspect]
     Active Substance: TOFACITINIB CITRATE
     Dosage: UNK (HAVE BEEN TAKING HALF OF THE 11 MG)

REACTIONS (4)
  - Wrong technique in product usage process [Unknown]
  - Renal impairment [Unknown]
  - Product use issue [Unknown]
  - Off label use [Unknown]
